FAERS Safety Report 7465544-7 (Version None)
Quarter: 2011Q2

REPORT INFORMATION
  Report Type: 
  Country: None (occurrence: None)
  Receive Date: 20110509
  Receipt Date: 20110429
  Transmission Date: 20111010
  Serious: Yes (Other)
  Sender: FDA-Public Use
  Company Number: US-ROCHE-774665

PATIENT
  Age: 60 Year
  Sex: Male

DRUGS (4)
  1. OXALIPLATIN [Suspect]
     Route: 042
  2. AVASTIN [Suspect]
     Route: 042
  3. FLUOROURACIL [Suspect]
     Route: 042
  4. LEUCOVORIN CALCIUM [Suspect]
     Route: 042

REACTIONS (8)
  - NEUTROPENIA [None]
  - EATING DISORDER [None]
  - HYPERTENSION [None]
  - NAUSEA [None]
  - RENAL FAILURE ACUTE [None]
  - PLATELET COUNT DECREASED [None]
  - PROTEINURIA [None]
  - BLOOD CREATININE INCREASED [None]
